FAERS Safety Report 8954320 (Version 1)
Quarter: 2012Q4

REPORT INFORMATION
  Report Type: Spontaneous
  Country: GB (occurrence: None)
  Receive Date: 20121130
  Receipt Date: 20121130
  Transmission Date: 20130627
  Serious: Yes (Hospitalization)
  Sender: FDA-Public Use
  Company Number: ACET20120029

PATIENT
  Age: 14 Month
  Sex: Male
  Weight: 10.4 kg

DRUGS (3)
  1. ACETAMINOPHEN [Suspect]
     Indication: PYREXIA
     Dosage: 3000 mg, 5ml EVERY 4 HOURS,  Oral
     Route: 048
     Dates: start: 2011, end: 201107
  2. ACETAMINOPHEN [Suspect]
     Indication: PYREXIA
     Route: 048
  3. IBUPROFEN [Suspect]

REACTIONS (4)
  - Accidental overdose [None]
  - Toxicity to various agents [None]
  - Viral rash [None]
  - Incorrect dose administered [None]
